FAERS Safety Report 8801369 (Version 7)
Quarter: 2014Q3

REPORT INFORMATION
  Report Type: Spontaneous
  Country: GB (occurrence: GB)
  Receive Date: 20120921
  Receipt Date: 20140701
  Transmission Date: 20150326
  Serious: Yes (Hospitalization, Other)
  Sender: FDA-Public Use
  Company Number: GB-B.I. PHARMACEUTICALS,INC./RIDGEFIELD-2012-UK-01216UK

PATIENT
  Age: 34 Year
  Sex: Female

DRUGS (9)
  1. KALETRA [Suspect]
     Active Substance: LOPINAVIR\RITONAVIR
     Indication: HIV INFECTION
     Route: 048
     Dates: start: 20100610
  2. KALETRA [Suspect]
     Active Substance: LOPINAVIR\RITONAVIR
     Route: 065
  3. ZIDOVUDINE. [Suspect]
     Active Substance: ZIDOVUDINE
     Indication: PRODUCT USED FOR UNKNOWN INDICATION
     Dosage: 600 MG
     Route: 065
     Dates: start: 20090101, end: 20100610
  4. ISENTRESS [Suspect]
     Active Substance: RALTEGRAVIR POTASSIUM
     Indication: HIV INFECTION
     Dosage: 3200 MG
     Route: 065
     Dates: start: 20100610
  5. VIRAMUNE [Suspect]
     Active Substance: NEVIRAPINE
     Indication: PRODUCT USED FOR UNKNOWN INDICATION
     Dosage: 400 MG
     Route: 048
     Dates: start: 20090101, end: 20100610
  6. VIRAMUNE [Suspect]
     Active Substance: NEVIRAPINE
     Dosage: 400 MG
     Route: 048
  7. LAMIVUDINE. [Suspect]
     Active Substance: LAMIVUDINE
     Indication: PRODUCT USED FOR UNKNOWN INDICATION
     Dosage: 300 MG
     Route: 065
     Dates: start: 20090101, end: 20100610
  8. TENOFOVIR DISOPROXIL FUMARATE [Suspect]
     Active Substance: TENOFOVIR DISOPROXIL FUMARATE
     Indication: HIV INFECTION
     Dosage: 300 MG
     Route: 065
     Dates: start: 20100610
  9. TENOFOVIR DISOPROXIL FUMARATE [Suspect]
     Active Substance: TENOFOVIR DISOPROXIL FUMARATE
     Route: 065

REACTIONS (5)
  - Hepatocellular injury [Unknown]
  - Alanine aminotransferase increased [Unknown]
  - Aspartate aminotransferase increased [Unknown]
  - Exposure during pregnancy [Recovered/Resolved]
  - Caesarean section [Unknown]

NARRATIVE: CASE EVENT DATE: 20100629
